FAERS Safety Report 10038084 (Version 1)
Quarter: 2014Q1

REPORT INFORMATION
  Report Type: Spontaneous
  Country: US (occurrence: None)
  Receive Date: 20140306
  Receipt Date: 20140306
  Transmission Date: 20141002
  Serious: Yes (Hospitalization, Other)
  Sender: FDA-Public Use
  Company Number: 163-21880-13104760

PATIENT
  Age: 75 Year
  Sex: Male

DRUGS (12)
  1. REVLIMID [Suspect]
     Indication: MYELODYSPLASTIC SYNDROME
     Dosage: 10 MG, 21 IN 28 D, PO
     Route: 048
     Dates: start: 201309, end: 20131022
  2. RBC [Concomitant]
  3. AB (AB) [Concomitant]
  4. PANTOPRAZOLE (PANTOPRAZOLE) [Concomitant]
  5. METOPROLOL (METOPROLOL) [Concomitant]
  6. LOVASTATIN (LOVASTATIN) [Concomitant]
  7. VIT D (ERGOCALCIFEROL) [Concomitant]
  8. PRESERVISION LUTEIN [Concomitant]
  9. NIACIN (NICOTINIC ACID) [Concomitant]
  10. FISH OIL (FISH OIL) [Concomitant]
  11. DOXYCYCLINE (DOXYCYCLINE) [Concomitant]
  12. PROCRIT (ERYTHROPOIETIN) [Concomitant]

REACTIONS (5)
  - Eosinophilic cellulitis [None]
  - Staphylococcal bacteraemia [None]
  - Fatigue [None]
  - Epistaxis [None]
  - Urticaria [None]
